FAERS Safety Report 9253642 (Version 1)
Quarter: 2013Q2

REPORT INFORMATION
  Report Type: Spontaneous
  Country: US (occurrence: US)
  Receive Date: 20130425
  Receipt Date: 20130425
  Transmission Date: 20140414
  Serious: No
  Sender: FDA-Public Use
  Company Number: US-009507513-1304USA008826

PATIENT
  Age: 34 Year
  Sex: Male

DRUGS (1)
  1. SAPHRIS [Suspect]
     Indication: TINNITUS
     Dosage: 5 MG, UNK
     Dates: start: 20130405

REACTIONS (9)
  - Oropharyngeal pain [Unknown]
  - Screaming [Unknown]
  - Product quality issue [Unknown]
  - Chest discomfort [Unknown]
  - Heart rate increased [Unknown]
  - Incorrect route of drug administration [Unknown]
  - Dysgeusia [Unknown]
  - Paraesthesia [Unknown]
  - Hypoaesthesia [Unknown]
